FAERS Safety Report 13286107 (Version 1)
Quarter: 2017Q1

REPORT INFORMATION
  Report Type: Spontaneous
  Country: US (occurrence: US)
  Receive Date: 20170302
  Receipt Date: 20170302
  Transmission Date: 20170428
  Serious: No
  Sender: FDA-Public Use
  Company Number: None

PATIENT
  Sex: Male

DRUGS (2)
  1. ANDROGEL [Suspect]
     Active Substance: TESTOSTERONE
  2. PARLODEL [Suspect]
     Active Substance: BROMOCRIPTINE MESYLATE

REACTIONS (11)
  - Imprisonment [None]
  - Economic problem [None]
  - Legal problem [None]
  - Memory impairment [None]
  - Obsessive-compulsive disorder [None]
  - Gambling [None]
  - Partner stress [None]
  - Hypomania [None]
  - Emotional distress [None]
  - Compulsive sexual behaviour [None]
  - Injury [None]
